FAERS Safety Report 10046784 (Version 1)
Quarter: 2014Q1

REPORT INFORMATION
  Report Type: Spontaneous
  Country: JP (occurrence: JP)
  Receive Date: 20140331
  Receipt Date: 20140331
  Transmission Date: 20141002
  Serious: Yes (Other)
  Sender: FDA-Public Use
  Company Number: PHHY2014JP037978

PATIENT
  Age: 80 Year
  Sex: Female

DRUGS (2)
  1. SANDIMMUN [Suspect]
     Indication: CYTOMEGALOVIRUS ENTEROCOLITIS
  2. SANDIMMUN [Suspect]
     Indication: OFF LABEL USE

REACTIONS (3)
  - Large intestine perforation [Unknown]
  - Colitis ulcerative [Unknown]
  - Immunosuppressant drug level decreased [Unknown]
